FAERS Safety Report 18275642 (Version 2)
Quarter: 2021Q3

REPORT INFORMATION
  Report Type: Spontaneous
  Country: US (occurrence: US)
  Receive Date: 20200917
  Receipt Date: 20210918
  Transmission Date: 20211014
  Serious: No
  Sender: FDA-Public Use
  Company Number: US-BION-008230

PATIENT
  Age: 87 Year
  Sex: Female

DRUGS (1)
  1. ZYRTEC [Suspect]
     Active Substance: CETIRIZINE HYDROCHLORIDE
     Indication: HYPERSENSITIVITY
     Dosage: DOSE: 1 LIQUID GEL DAILY
     Route: 048

REACTIONS (2)
  - Fatigue [Unknown]
  - Incorrect product administration duration [Not Recovered/Not Resolved]
